FAERS Safety Report 25917122 (Version 1)
Quarter: 2025Q4

REPORT INFORMATION
  Report Type: Spontaneous
  Country: PH (occurrence: US)
  Receive Date: 20251014
  Receipt Date: 20251014
  Transmission Date: 20260118
  Serious: Yes (Other)
  Sender: SPECGX
  Company Number: PH-SPECGX-T202501655

PATIENT
  Sex: Female

DRUGS (3)
  1. NALTREXONE [Suspect]
     Active Substance: NALTREXONE
     Indication: Alcoholism
     Dosage: UNK
     Route: 048
  2. VIVITROL [Suspect]
     Active Substance: NALTREXONE
     Indication: Alcoholism
     Dosage: 380 MILLIGRAM, MONTHLY, EVERY MO NTH (QMO), INTRAMUSCULAR-GLUTEAL FOR ALCOHOL DEPENDENCE
     Route: 030
     Dates: start: 2005
  3. VIVITROL [Suspect]
     Active Substance: NALTREXONE
     Dosage: 380 MILLIGRAM, MONTHLY
     Route: 030
     Dates: start: 2010

REACTIONS (3)
  - Fall [Unknown]
  - Hip fracture [Unknown]
  - Pain [Unknown]
